FAERS Safety Report 4723629-X (Version None)
Quarter: 2005Q3

REPORT INFORMATION
  Report Type: 
  Country: None (occurrence: None)
  Receive Date: 20050722
  Receipt Date: 20050712
  Transmission Date: 20060218
  Serious: Yes (Hospitalization)
  Sender: FDA-Public Use
  Company Number: 05-07-1182

PATIENT
  Age: 47 Year
  Sex: Female

DRUGS (2)
  1. CLOZAPINE [Suspect]
     Indication: BIPOLAR DISORDER
     Dosage: 200-600MG QD ORAL
     Route: 048
     Dates: start: 20041101
  2. CLOZAPINE [Suspect]
     Indication: DEMENTIA
     Dosage: 200-600MG QD ORAL
     Route: 048
     Dates: start: 20041101

REACTIONS (1)
  - LYMPHOMA [None]
